FAERS Safety Report 6996556-5 (Version None)
Quarter: 2010Q3

REPORT INFORMATION
  Report Type: 
  Country: None (occurrence: None)
  Receive Date: 20100918
  Receipt Date: 20090410
  Transmission Date: 20110219
  Serious: Yes (Hospitalization)
  Sender: FDA-Public Use
  Company Number: US-WYE-H08923009

PATIENT
  Age: 60 Year
  Sex: Female

DRUGS (6)
  1. EFFEXOR XR [Suspect]
     Indication: DEPRESSION
     Dosage: UNKNOWN
     Route: 048
     Dates: end: 20070101
  2. EFFEXOR XR [Suspect]
     Route: 048
     Dates: start: 20070101, end: 20090301
  3. EFFEXOR XR [Suspect]
     Route: 048
     Dates: start: 20090301, end: 20090101
  4. EFFEXOR XR [Suspect]
     Route: 048
     Dates: start: 20090101
  5. CYTOMEL [Concomitant]
     Dosage: UNKNOWN
  6. SYNTHROID [Concomitant]
     Dosage: UNKNOWN

REACTIONS (6)
  - DRUG WITHDRAWAL SYNDROME [None]
  - DRY MOUTH [None]
  - NIGHT SWEATS [None]
  - PERIPHERAL COLDNESS [None]
  - VENTRICULAR FIBRILLATION [None]
  - VENTRICULAR TACHYCARDIA [None]
